FAERS Safety Report 20738099 (Version 1)
Quarter: 2022Q2

REPORT INFORMATION
  Report Type: Spontaneous
  Country: US (occurrence: US)
  Receive Date: 20220422
  Receipt Date: 20220422
  Transmission Date: 20220720
  Serious: Yes (Death)
  Sender: FDA-Public Use
  Company Number: US-Global Blood Therapeutics Inc-US-GBT-22-02174

PATIENT
  Age: 30 Year
  Sex: Male

DRUGS (1)
  1. OXBRYTA [Suspect]
     Active Substance: VOXELOTOR
     Indication: Sickle cell disease
     Route: 048
     Dates: start: 20201027, end: 202111

REACTIONS (3)
  - Death [Fatal]
  - Therapy cessation [Unknown]
  - Insurance issue [Unknown]

NARRATIVE: CASE EVENT DATE: 20211101
